FAERS Safety Report 13135657 (Version 2)
Quarter: 2017Q3

REPORT INFORMATION
  Report Type: Spontaneous
  Country: US (occurrence: US)
  Receive Date: 20170120
  Receipt Date: 20170823
  Transmission Date: 20171127
  Serious: Yes (Other)
  Sender: FDA-Public Use
  Company Number: US-ALLERGAN-1678579US

PATIENT
  Age: 78 Year
  Sex: Female

DRUGS (3)
  1. CARAFATE [Suspect]
     Active Substance: SUCRALFATE
     Dosage: UNK
     Route: 048
     Dates: start: 20160326
  2. CARAFATE [Suspect]
     Active Substance: SUCRALFATE
     Dosage: UNK, QID
     Route: 048
     Dates: start: 20161127
  3. CARAFATE [Suspect]
     Active Substance: SUCRALFATE
     Indication: GASTROOESOPHAGEAL REFLUX DISEASE
     Dosage: 10 ML, QID
     Route: 048
     Dates: start: 20170730

REACTIONS (6)
  - Drug ineffective for unapproved indication [Unknown]
  - Gallbladder disorder [Unknown]
  - Product storage error [Unknown]
  - Off label use [Unknown]
  - Burn oesophageal [Unknown]
  - Drug dose omission [Unknown]

NARRATIVE: CASE EVENT DATE: 20161127
